FAERS Safety Report 7440218-7 (Version None)
Quarter: 2011Q2

REPORT INFORMATION
  Report Type: 
  Country: None (occurrence: None)
  Receive Date: 20110427
  Receipt Date: 20110425
  Transmission Date: 20111010
  Serious: Yes (Hospitalization)
  Sender: FDA-Public Use
  Company Number: US-ABBOTT-11P-163-0721590-00

PATIENT
  Sex: Male
  Weight: 90.8 kg

DRUGS (7)
  1. ALPRAZOLAM [Concomitant]
     Indication: ANXIETY
  2. CYMBALTA [Concomitant]
     Indication: DEPRESSION
  3. PREDNISONE [Concomitant]
     Indication: PRODUCT USED FOR UNKNOWN INDICATION
  4. METHADONE [Concomitant]
     Indication: DRUG DEPENDENCE
  5. MULTI-VITAMIN [Concomitant]
     Indication: PRODUCT USED FOR UNKNOWN INDICATION
  6. DICYCLOMINE [Concomitant]
     Indication: PRODUCT USED FOR UNKNOWN INDICATION
  7. HUMIRA [Suspect]
     Indication: CROHN'S DISEASE
     Dates: start: 20090101

REACTIONS (5)
  - LOSS OF CONSCIOUSNESS [None]
  - INTESTINAL ULCER PERFORATION [None]
  - PULMONARY EMBOLISM [None]
  - OEDEMA PERIPHERAL [None]
  - HAEMORRHAGE [None]
